FAERS Safety Report 9670363 (Version 2)
Quarter: 2013Q4

REPORT INFORMATION
  Report Type: Spontaneous
  Country: US (occurrence: US)
  Receive Date: 20131105
  Receipt Date: 20131207
  Transmission Date: 20140711
  Serious: Yes (Hospitalization, Other)
  Sender: FDA-Public Use
  Company Number: US-TEVA-441704USA

PATIENT
  Age: 62 Year
  Sex: Female
  Weight: 63.5 kg

DRUGS (8)
  1. LISINOPRIL AND HYDROCHLOROTHIAZIDE [Suspect]
     Indication: HYPERTENSION
     Route: 048
     Dates: start: 20130418, end: 20130427
  2. CLONIDINE [Suspect]
     Indication: HYPERTENSION
     Dosage: .3 MILLIGRAM DAILY;
     Route: 048
     Dates: start: 20130418, end: 20130427
  3. SM-13496 [Suspect]
     Indication: SCHIZOPHRENIA
     Dosage: HS
     Route: 048
  4. SM-13496 [Suspect]
     Dosage: HS
     Route: 048
  5. PROZAC [Concomitant]
     Dates: start: 2006
  6. PREVACID [Concomitant]
     Dates: start: 2001
  7. NORVASC [Concomitant]
  8. LATUDA-LURASIDONE HCL [Concomitant]
     Dosage: 80 MILLIGRAM DAILY;

REACTIONS (5)
  - Hypotension [Recovered/Resolved]
  - Loss of consciousness [Recovered/Resolved]
  - Rectal haemorrhage [Unknown]
  - Intentional drug misuse [Unknown]
  - Psychotic disorder [Unknown]
